FAERS Safety Report 19828321 (Version 1)
Quarter: 2021Q3

REPORT INFORMATION
  Report Type: Other
  Country: US (occurrence: US)
  Receive Date: 20210914
  Receipt Date: 20210914
  Transmission Date: 20211014
  Serious: Yes (Other)
  Sender: FDA-Public Use
  Company Number: US-ROCHE-2904314

PATIENT
  Age: 46 Year
  Sex: Male
  Weight: 92.62 kg

DRUGS (8)
  1. SOLU?MEDROL [Suspect]
     Active Substance: METHYLPREDNISOLONE SODIUM SUCCINATE
     Indication: PREMEDICATION
     Route: 065
  2. GABAPENTIN. [Concomitant]
     Active Substance: GABAPENTIN
  3. SEROQUEL [Concomitant]
     Active Substance: QUETIAPINE FUMARATE
  4. PREDNISONE. [Suspect]
     Active Substance: PREDNISONE
     Indication: MULTIPLE SCLEROSIS RELAPSE
     Dosage: TAPER DOWN FROM SIX 10 MG PILLS BY ONE 10 MG PILL EVERY 2 DAYS FOR 12?DAYS
     Route: 065
     Dates: start: 202107
  5. DECADRON [Concomitant]
     Active Substance: DEXAMETHASONE
  6. OCREVUS [Suspect]
     Active Substance: OCRELIZUMAB
     Indication: RELAPSING-REMITTING MULTIPLE SCLEROSIS
     Dosage: (PRESCRIBED AS 300 MG ON DAY 1  AND DAY 15  AND 600 MG ONCE IN 6 MONTHS)
     Route: 042
     Dates: start: 2016, end: 2018
  7. OCREVUS [Suspect]
     Active Substance: OCRELIZUMAB
     Dosage: HALF DOSE ;ONGOING: YES
     Route: 042
     Dates: start: 20210825
  8. SOLU?MEDROL [Suspect]
     Active Substance: METHYLPREDNISOLONE SODIUM SUCCINATE
     Indication: MULTIPLE SCLEROSIS RELAPSE
     Dosage: 4 DAYS TOTAL
     Route: 065
     Dates: start: 202107

REACTIONS (7)
  - Fall [Unknown]
  - Multiple sclerosis [Not Recovered/Not Resolved]
  - Multiple sclerosis relapse [Not Recovered/Not Resolved]
  - Contusion [Recovered/Resolved]
  - Weight increased [Not Recovered/Not Resolved]
  - Pneumonia [Recovered/Resolved]
  - Mass [Recovered/Resolved]

NARRATIVE: CASE EVENT DATE: 2018
